FAERS Safety Report 4448302-7 (Version None)
Quarter: 2004Q3

REPORT INFORMATION
  Report Type: 
  Country: None (occurrence: None)
  Receive Date: 20040910
  Receipt Date: 20040907
  Transmission Date: 20050211
  Serious: Yes (Other)
  Sender: FDA-Public Use
  Company Number: 002628

PATIENT
  Age: 63 Year
  Sex: Female

DRUGS (6)
  1. MEDROXYPROGESTERONE ACETATE [Suspect]
     Dates: start: 19900101, end: 19911001
  2. MEDROXYPROGESTERONE ACETATE [Suspect]
     Dates: start: 19941201, end: 19951201
  3. CONJUGATED ESTROGENS [Suspect]
     Dates: start: 19870701, end: 19910701
  4. PROVERA [Suspect]
     Dates: start: 19911001, end: 19941001
  5. PREMARIN [Suspect]
     Dates: start: 19910701, end: 19951001
  6. MEDROXYPROGESTERONE ACETATE [Suspect]
     Dates: start: 19951201, end: 19980301

REACTIONS (1)
  - BREAST CANCER FEMALE [None]
